FAERS Safety Report 17933947 (Version 1)
Quarter: 2020Q2

REPORT INFORMATION
  Report Type: Spontaneous
  Country: BE (occurrence: BE)
  Receive Date: 20200624
  Receipt Date: 20200624
  Transmission Date: 20200714
  Serious: Yes (Death)
  Sender: FDA-Public Use
  Company Number: NVSC2020BE175496

PATIENT
  Age: 62 Year
  Sex: Male

DRUGS (6)
  1. AMOXICILLIN, CLAVULANIC ACID [Suspect]
     Active Substance: AMOXICILLIN\CLAVULANIC ACID
     Indication: NECROTISING FASCIITIS
  2. AMIKACIN. [Suspect]
     Active Substance: AMIKACIN
     Indication: NECROTISING FASCIITIS
  3. AMOXICILLIN, CLAVULANIC ACID [Suspect]
     Active Substance: AMOXICILLIN\CLAVULANIC ACID
     Indication: GAS GANGRENE
     Dosage: UNK
     Route: 042
  4. CLINDAMYCIN. [Suspect]
     Active Substance: CLINDAMYCIN
     Indication: GAS GANGRENE
     Dosage: UNK
     Route: 042
  5. CLINDAMYCIN. [Suspect]
     Active Substance: CLINDAMYCIN
     Indication: NECROTISING FASCIITIS
  6. AMIKACIN. [Suspect]
     Active Substance: AMIKACIN
     Indication: GAS GANGRENE
     Dosage: 25 MG/KG
     Route: 042

REACTIONS (2)
  - Product use in unapproved indication [Unknown]
  - Condition aggravated [Fatal]
